FAERS Safety Report 6829464-0 (Version None)
Quarter: 2010Q3

REPORT INFORMATION
  Report Type: 
  Country: None (occurrence: None)
  Receive Date: 20100709
  Receipt Date: 20070516
  Transmission Date: 20110219
  Serious: No
  Sender: FDA-Public Use
  Company Number: US-PFIZER INC-2007019947

PATIENT
  Sex: Female
  Weight: 68.04 kg

DRUGS (4)
  1. VARENICLINE [Suspect]
     Indication: SMOKING CESSATION THERAPY
     Dates: start: 20070219
  2. SARAFEM [Concomitant]
  3. ZELNORM [Concomitant]
  4. TRAZODONE [Concomitant]

REACTIONS (2)
  - DRY THROAT [None]
  - SINUS DISORDER [None]
